FAERS Safety Report 10158248 (Version 1)
Quarter: 2014Q2

REPORT INFORMATION
  Report Type: Spontaneous
  Country: US (occurrence: US)
  Receive Date: 20140507
  Receipt Date: 20140507
  Transmission Date: 20141212
  Serious: Yes (Other)
  Sender: FDA-Public Use
  Company Number: US-GE HEALTHCARE MEDICAL DIAGNOSTICS-OMPQ-PR-1404S-0426

PATIENT
  Age: 46 Year
  Sex: Female

DRUGS (3)
  1. OMNIPAQUE [Suspect]
     Indication: HEADACHE
     Route: 042
     Dates: start: 20140424, end: 20140424
  2. OMNIPAQUE [Suspect]
     Indication: MALIGNANT MELANOMA
  3. OMNIPAQUE [Suspect]
     Indication: DIAGNOSTIC PROCEDURE

REACTIONS (3)
  - Wheezing [Unknown]
  - Sneezing [Unknown]
  - Pruritus [Unknown]
